FAERS Safety Report 21269395 (Version 1)
Quarter: 2022Q3

REPORT INFORMATION
  Report Type: Spontaneous
  Country: US (occurrence: None)
  Receive Date: 20220829
  Receipt Date: 20220829
  Transmission Date: 20221027
  Serious: Yes (unspecified)
  Sender: FDA-Public Use
  Company Number: None

PATIENT
  Age: 93 Year
  Sex: Female
  Weight: 66.5 kg

DRUGS (1)
  1. RITUXAN [Suspect]
     Active Substance: RITUXIMAB
     Indication: Lymphoma
     Dosage: FREQUENCY : WEEKLY;?
     Route: 041
     Dates: start: 20220801

REACTIONS (6)
  - Infusion related reaction [None]
  - Dyspnoea [None]
  - Dizziness [None]
  - Oxygen saturation decreased [None]
  - Heart rate increased [None]
  - Blood pressure diastolic decreased [None]

NARRATIVE: CASE EVENT DATE: 20220809
